FAERS Safety Report 6531902-8 (Version None)
Quarter: 2010Q1

REPORT INFORMATION
  Report Type: 
  Country: None (occurrence: None)
  Receive Date: 20100107
  Receipt Date: 20100107
  Transmission Date: 20100710
  Serious: Yes (Other)
  Sender: FDA-Public Use
  Company Number: None

PATIENT
  Age: 25 Year
  Sex: Female
  Weight: 59.4212 kg

DRUGS (2)
  1. LYRICA [Suspect]
     Indication: ANXIETY
     Dosage: 50 MG ONCE A DAY PO
     Route: 048
     Dates: start: 20090901, end: 20091231
  2. LYRICA [Suspect]
     Indication: BACK DISORDER
     Dosage: 50 MG ONCE A DAY PO
     Route: 048
     Dates: start: 20090901, end: 20091231

REACTIONS (2)
  - DRUG INEFFECTIVE [None]
  - PRODUCT MEASURED POTENCY ISSUE [None]
